FAERS Safety Report 13551814 (Version 1)
Quarter: 2017Q2

REPORT INFORMATION
  Report Type: Spontaneous
  Country: US (occurrence: US)
  Receive Date: 20170516
  Receipt Date: 20170516
  Transmission Date: 20170830
  Serious: No
  Sender: FDA-Public Use
  Company Number: US-ABBVIE-16P-163-1726554-00

PATIENT
  Sex: Female

DRUGS (3)
  1. GENGRAF [Suspect]
     Active Substance: CYCLOSPORINE
     Indication: PRODUCT USED FOR UNKNOWN INDICATION
     Route: 065
  2. LIDOCAINE. [Concomitant]
     Active Substance: LIDOCAINE
     Indication: PRODUCT USED FOR UNKNOWN INDICATION
  3. STELLA [Concomitant]
     Indication: PSORIASIS

REACTIONS (5)
  - Psoriasis [Unknown]
  - Fear [Unknown]
  - Gait disturbance [Unknown]
  - Arthralgia [Unknown]
  - Feeling of despair [Unknown]
